FAERS Safety Report 6681954-X (Version None)
Quarter: 2010Q2

REPORT INFORMATION
  Report Type: 
  Country: None (occurrence: None)
  Receive Date: 20100405
  Receipt Date: 20100325
  Transmission Date: 20101027
  Serious: Yes (Death, Life-Threatening)
  Sender: FDA-Public Use
  Company Number: THYM-1001333

PATIENT
  Age: 59 Year
  Sex: Male
  Weight: 55 kg

DRUGS (11)
  1. THYMOGLOBULIN [Suspect]
     Indication: BONE MARROW CONDITIONING REGIMEN
     Dosage: 125 MG, QD, INTRAVENOUS
     Route: 042
     Dates: start: 20090813, end: 20090816
  2. FLUDARABINE PHOSPHATE [Concomitant]
  3. BUSULFAN (BUSULFAN) [Concomitant]
  4. ITRACONAZOLE [Concomitant]
  5. METHYLPREDNISOLONE [Concomitant]
  6. ACYCLOVIR [Concomitant]
  7. TRIMETHOPRIM + SULFAMETHOXAZOLE [Concomitant]
  8. LEVOFLOXACIN [Concomitant]
  9. VALPROATE SODIUM [Concomitant]
  10. CEFEPIME HYDROCHLORIDE [Concomitant]
  11. MICAFUNGIN SODIUM (MICAFUNGIN SODIUM) [Concomitant]

REACTIONS (3)
  - HEPATIC FAILURE [None]
  - PSEUDOMEMBRANOUS COLITIS [None]
  - PYREXIA [None]
